FAERS Safety Report 5386356-4 (Version None)
Quarter: 2007Q3

REPORT INFORMATION
  Report Type: 
  Country: None (occurrence: None)
  Receive Date: 20070705
  Receipt Date: 20070705
  Transmission Date: 20080115
  Serious: No
  Sender: FDA-Public Use
  Company Number: None

PATIENT
  Age: 76 Year
  Sex: Male

DRUGS (1)
  1. HYDROXYCHLOROQUINE TABS 698; 200MG; WATSON [Suspect]
     Indication: ARTHRITIS
     Dosage: TAKE 1 TABLET TWICE A DAY
     Dates: start: 20070228, end: 20070602

REACTIONS (3)
  - DYSGEUSIA [None]
  - PHARMACEUTICAL PRODUCT COMPLAINT [None]
  - STOMACH DISCOMFORT [None]
